FAERS Safety Report 5856496-1 (Version None)
Quarter: 2008Q3

REPORT INFORMATION
  Report Type: 
  Country: None (occurrence: None)
  Receive Date: 20080825
  Receipt Date: 20080613
  Transmission Date: 20090109
  Serious: No
  Sender: FDA-Public Use
  Company Number: A0732889A

PATIENT
  Age: 3 Year
  Sex: Female

DRUGS (3)
  1. VERAMYST [Suspect]
     Dosage: 1SPR PER DAY
     Route: 045
     Dates: start: 20070901
  2. ZYRTEC [Concomitant]
  3. MIRALAX [Concomitant]

REACTIONS (2)
  - PRURITUS [None]
  - URTICARIA [None]
